FAERS Safety Report 8955808 (Version 1)
Quarter: 2012Q4

REPORT INFORMATION
  Report Type: 
  Country: CA (occurrence: CA)
  Receive Date: 20121210
  Receipt Date: 20121210
  Transmission Date: 20130627
  Serious: Yes (Disabling)
  Sender: FDA-Public Use
  Company Number: CA-B.I. PHARMACEUTICALS,INC./RIDGEFIELD-2012-CN-02480CN

PATIENT
  Age: 73 Year
  Sex: Male
  Weight: 82 kg

DRUGS (8)
  1. PRADAX [Suspect]
     Route: 048
  2. ATACAND [Concomitant]
  3. COUMADIN [Concomitant]
  4. CRESTOR [Concomitant]
  5. HCTZ [Concomitant]
  6. REACTINE [Concomitant]
  7. SECTRAL [Concomitant]
  8. VIAGRA [Concomitant]

REACTIONS (3)
  - Fatigue [Recovered/Resolved]
  - Hypothyroidism [Recovered/Resolved]
  - Malaise [Recovered/Resolved]
